FAERS Safety Report 13142307 (Version 5)
Quarter: 2017Q2

REPORT INFORMATION
  Report Type: Spontaneous
  Country: US (occurrence: US)
  Receive Date: 20170123
  Receipt Date: 20170406
  Transmission Date: 20170830
  Serious: Yes (Hospitalization)
  Sender: FDA-Public Use
  Company Number: US-ACTELION-A-NJ2017-148707

PATIENT
  Age: 61 Year
  Sex: Female
  Weight: 77.98 kg

DRUGS (3)
  1. DILTIAZEM. [Concomitant]
     Active Substance: DILTIAZEM
  2. ADEMPAS [Concomitant]
     Active Substance: RIOCIGUAT
  3. OPSUMIT [Suspect]
     Active Substance: MACITENTAN
     Indication: PULMONARY ARTERIAL HYPERTENSION
     Dosage: 10 MG, QD
     Route: 048
     Dates: start: 20170104

REACTIONS (11)
  - Pleurisy [Unknown]
  - Balance disorder [Unknown]
  - Tremor [Unknown]
  - Throat irritation [Unknown]
  - Fatigue [Unknown]
  - Dyspnoea [Unknown]
  - Dyspepsia [Unknown]
  - Oedema peripheral [Not Recovered/Not Resolved]
  - Eructation [Unknown]
  - Gastrooesophageal reflux disease [Unknown]
  - Chest pain [Unknown]
